FAERS Safety Report 20849940 (Version 1)
Quarter: 2022Q2

REPORT INFORMATION
  Report Type: Spontaneous
  Country: US (occurrence: None)
  Receive Date: 20220518
  Receipt Date: 20220518
  Transmission Date: 20220721
  Serious: Yes (Other)
  Sender: FDA-Public Use
  Company Number: None

PATIENT
  Age: 68 Year
  Sex: Female
  Weight: 67.13 kg

DRUGS (2)
  1. CELECOXIB [Suspect]
     Active Substance: CELECOXIB
     Indication: Arthralgia
     Dosage: FREQUENCY : DAILY;?
     Route: 048
     Dates: start: 20220425, end: 20220425
  2. CELECOXIB [Suspect]
     Active Substance: CELECOXIB
     Indication: Bone pain

REACTIONS (8)
  - Pruritus [None]
  - Vomiting [None]
  - Sinus disorder [None]
  - Increased viscosity of upper respiratory secretion [None]
  - Nausea [None]
  - Erythema [None]
  - Anaphylactic reaction [None]
  - Pain [None]

NARRATIVE: CASE EVENT DATE: 20220425
